FAERS Safety Report 7428007-0 (Version None)
Quarter: 2011Q2

REPORT INFORMATION
  Report Type: 
  Country: None (occurrence: None)
  Receive Date: 20110421
  Receipt Date: 20110328
  Transmission Date: 20111010
  Serious: No
  Sender: FDA-Public Use
  Company Number: US-B.I. PHARMACEUTICALS,INC./RIDGEFIELD-2011-BP-09457BP

PATIENT
  Sex: Male

DRUGS (3)
  1. AMBIEN [Concomitant]
     Indication: INSOMNIA
     Dosage: 10 MG
     Route: 048
  2. SPIRIVA [Suspect]
     Indication: CHRONIC OBSTRUCTIVE PULMONARY DISEASE
     Dosage: 18 MCG
     Route: 055
     Dates: start: 20110312
  3. SPIRIVA [Suspect]
     Indication: EMPHYSEMA

REACTIONS (4)
  - DYSGEUSIA [None]
  - DIARRHOEA [None]
  - DRY MOUTH [None]
  - MIGRAINE [None]
